FAERS Safety Report 16237287 (Version 1)
Quarter: 2019Q2

REPORT INFORMATION
  Report Type: Spontaneous
  Country: FI (occurrence: FI)
  Receive Date: 20190425
  Receipt Date: 20190425
  Transmission Date: 20190711
  Serious: Yes (Other)
  Sender: FDA-Public Use
  Company Number: FI-BAYER-2019-074836

PATIENT
  Age: 39 Year
  Sex: Female

DRUGS (1)
  1. AVELOX [Suspect]
     Active Substance: MOXIFLOXACIN HYDROCHLORIDE
     Dosage: UNK
     Dates: start: 20180129, end: 20180130

REACTIONS (14)
  - Epilepsy [None]
  - Hallucination [None]
  - Anxiety [None]
  - Nervous system disorder [None]
  - Speech disorder [None]
  - Tinnitus [None]
  - Fatigue [None]
  - Panic attack [None]
  - Tremor [None]
  - Vertigo [None]
  - Hypotension [None]
  - Visual impairment [None]
  - Autonomic nervous system imbalance [None]
  - Nausea [None]
